FAERS Safety Report 9385096 (Version 4)
Quarter: 2014Q1

REPORT INFORMATION
  Report Type: Report from Study
  Country: AU (occurrence: AU)
  Receive Date: 20130705
  Receipt Date: 20140313
  Transmission Date: 20141002
  Serious: Yes (Other)
  Sender: FDA-Public Use
  Company Number: PHHY2013AU068609

PATIENT
  Age: 51 Year
  Sex: Female

DRUGS (14)
  1. RITALINE [Suspect]
     Dosage: 10 MG, DAILY
  2. CAFFEINE [Suspect]
     Dosage: UNK UKN, UNK
  3. TRASTUZUMAB DM1 [Suspect]
     Indication: BREAST CANCER METASTATIC
     Dosage: 298 MG, EVERY THREE WEEKS
     Route: 042
     Dates: start: 20130404
  4. TRASTUZUMAB DM1 [Suspect]
     Dosage: 298 MG, EVERY THREE WEEKS
     Route: 042
     Dates: start: 20130607
  5. CONCERTA [Suspect]
     Dosage: 36 MG, DAILY
     Dates: start: 2003
  6. LOVAN [Concomitant]
     Dosage: 60 MG, DAILY
     Dates: start: 2008
  7. METFORMIN [Concomitant]
     Dosage: 1500 MG, DAILY
     Dates: start: 201301
  8. MELATONIN [Concomitant]
     Dosage: 3 MG, DAILY
     Dates: start: 2010
  9. CLARATYNE [Concomitant]
     Dosage: 10 MG, DAILY
     Dates: start: 1980
  10. XGEVA [Concomitant]
     Dosage: 120 MG (4 IN 1 WEEK)
     Dates: start: 201206
  11. NUROFEN COLD AND FLU [Concomitant]
     Dosage: 800 MG, DAILY
     Dates: start: 20130418
  12. NUROFEN COLD AND FLU [Concomitant]
     Dosage: 400 MG, DAILY
     Dates: start: 201301
  13. ATIVAN [Concomitant]
     Dosage: 1 MG, DAILY
     Dates: start: 200806
  14. ASPIRIN [Concomitant]
     Dosage: 100 MG, DAILY
     Dates: start: 20130424

REACTIONS (4)
  - Supraventricular tachycardia [Recovered/Resolved]
  - Dyspnoea [Recovered/Resolved]
  - Palpitations [Recovered/Resolved]
  - Dizziness [Recovered/Resolved]
